FAERS Safety Report 19930347 (Version 1)
Quarter: 2021Q4

REPORT INFORMATION
  Report Type: Spontaneous
  Country: ES (occurrence: ES)
  Receive Date: 20211008
  Receipt Date: 20211008
  Transmission Date: 20220303
  Serious: Yes (Hospitalization, Other)
  Sender: FDA-Public Use
  Company Number: ES-AEMPS-1009009

PATIENT
  Age: 86 Year
  Sex: Male
  Weight: 75 kg

DRUGS (6)
  1. BISOPROLOL [Suspect]
     Active Substance: BISOPROLOL
     Indication: Atrial fibrillation
     Dosage: 1.5 MILLIGRAM, ONCE A DAY
     Route: 048
     Dates: start: 20210721, end: 20210829
  2. ELIQUIS [Suspect]
     Active Substance: APIXABAN
     Indication: Atrial fibrillation
     Dosage: 5 MILLIGRAM, TWO TIMES A DAY
     Route: 048
     Dates: start: 20210727, end: 20210829
  3. PAZITAL [Suspect]
     Active Substance: ACETAMINOPHEN\TRAMADOL HYDROCHLORIDE
     Indication: Rheumatoid arthritis
     Dosage: 325 MILLIGRAM, TWO TIMES A DAY
     Route: 048
     Dates: start: 20191226, end: 20210829
  4. METHOTREXATE SODIUM [Suspect]
     Active Substance: METHOTREXATE SODIUM
     Indication: Rheumatoid arthritis
     Dosage: 15 MILLIGRAM, EVERY WEEK
     Route: 030
     Dates: start: 20140801, end: 20210829
  5. OMEPRAZOLE [Concomitant]
     Active Substance: OMEPRAZOLE
     Indication: Gastrooesophageal reflux prophylaxis
     Dosage: 20 MILLIGRAM, ONCE A DAY
     Route: 048
     Dates: start: 20210721
  6. LEUCOVORIN [Concomitant]
     Active Substance: LEUCOVORIN
     Indication: Cell-mediated cytotoxicity
     Dosage: 15 MILLIGRAM, EVERY WEEK
     Route: 048
     Dates: start: 20140801

REACTIONS (3)
  - Hyperbilirubinaemia [Recovering/Resolving]
  - Hepatic cytolysis [Recovering/Resolving]
  - Coagulopathy [Recovering/Resolving]

NARRATIVE: CASE EVENT DATE: 20210826
